FAERS Safety Report 4871519-4 (Version None)
Quarter: 2005Q4

REPORT INFORMATION
  Report Type: 
  Country: None (occurrence: None)
  Receive Date: 20051229
  Receipt Date: 20051212
  Transmission Date: 20060501
  Serious: Yes (Other)
  Sender: FDA-Public Use
  Company Number: US200512002156

PATIENT
  Age: 84 Year
  Sex: Female

DRUGS (3)
  1. FORTEO [Suspect]
     Dates: start: 20041014
  2. WARFARIN SODIUM [Concomitant]
  3. CALCIUM CARBONATE (CALCIUM CARBONATE) [Concomitant]

REACTIONS (4)
  - BRAIN NEOPLASM [None]
  - CEREBROVASCULAR ACCIDENT [None]
  - FALL [None]
  - PHARMACEUTICAL PRODUCT COMPLAINT [None]
